FAERS Safety Report 6067442-2 (Version None)
Quarter: 2009Q1

REPORT INFORMATION
  Report Type: 
  Country: None (occurrence: None)
  Receive Date: 20090205
  Receipt Date: 20090126
  Transmission Date: 20090719
  Serious: Yes (Other)
  Sender: FDA-Public Use
  Company Number: US-PFIZER INC-2009160866

PATIENT
  Sex: Female

DRUGS (1)
  1. CHANTIX [Suspect]
     Dates: start: 20081226

REACTIONS (4)
  - AGITATION [None]
  - BIPOLAR DISORDER [None]
  - CRYING [None]
  - NIGHTMARE [None]
